FAERS Safety Report 25548617 (Version 2)
Quarter: 2025Q3

REPORT INFORMATION
  Report Type: Spontaneous
  Country: US (occurrence: US)
  Receive Date: 20250714
  Receipt Date: 20250917
  Transmission Date: 20251021
  Serious: Yes (Life-Threatening, Disabling)
  Sender: PFIZER
  Company Number: US-PFIZER INC-202500139465

PATIENT
  Age: 57 Year
  Sex: Female
  Weight: 82.55 kg

DRUGS (2)
  1. PREMPRO [Suspect]
     Active Substance: ESTROGENS, CONJUGATED\MEDROXYPROGESTERONE ACETATE
     Indication: Menopausal symptoms
     Dosage: ONCE A DAY, BY MOUTH
     Route: 048
     Dates: start: 20190212, end: 202105
  2. METOPROLOL [Concomitant]
     Active Substance: METOPROLOL
     Dates: start: 20190227, end: 20250701

REACTIONS (4)
  - Venous occlusion [Not Recovered/Not Resolved]
  - Peripheral swelling [Not Recovered/Not Resolved]
  - Skin discolouration [Not Recovered/Not Resolved]
  - Inflammation [Not Recovered/Not Resolved]

NARRATIVE: CASE EVENT DATE: 20210501
